FAERS Safety Report 10768597 (Version 2)
Quarter: 2015Q1

REPORT INFORMATION
  Report Type: Spontaneous
  Country: US (occurrence: US)
  Receive Date: 20150206
  Receipt Date: 20150223
  Transmission Date: 20150721
  Serious: Yes (Hospitalization, Other)
  Sender: FDA-Public Use
  Company Number: US-AMGEN-USASP2015010491

PATIENT
  Age: 68 Year
  Sex: Female

DRUGS (1)
  1. ENBREL [Suspect]
     Active Substance: ETANERCEPT
     Indication: RHEUMATOID ARTHRITIS
     Dosage: UNK
     Route: 065
     Dates: start: 20090301

REACTIONS (12)
  - Malaise [Unknown]
  - Gait disturbance [Unknown]
  - Blood cholesterol abnormal [Unknown]
  - Weight decreased [Unknown]
  - Abdominal pain upper [Unknown]
  - Hypertension [Unknown]
  - Spinal disorder [Unknown]
  - Drug interaction [Unknown]
  - Hospitalisation [Unknown]
  - Eating disorder [Unknown]
  - Muscle disorder [Unknown]
  - Pancreatic disorder [Unknown]
